FAERS Safety Report 11374819 (Version 1)
Quarter: 2015Q3

REPORT INFORMATION
  Report Type: Spontaneous
  Country: US (occurrence: US)
  Receive Date: 20150813
  Receipt Date: 20150813
  Transmission Date: 20151125
  Serious: Yes (Other)
  Sender: FDA-Public Use
  Company Number: US-ROCHE-1617058

PATIENT
  Sex: Female

DRUGS (4)
  1. VALIUM [Suspect]
     Active Substance: DIAZEPAM
     Indication: PRODUCT USED FOR UNKNOWN INDICATION
     Dosage: FOR THREE MONTHS ON AND OFF WITH LIQUIGELS.
     Route: 065
  2. TYLENOL [Concomitant]
     Active Substance: ACETAMINOPHEN
  3. ADVIL [Suspect]
     Active Substance: IBUPROFEN
     Indication: PRODUCT USED FOR UNKNOWN INDICATION
     Route: 065
  4. GAS-X [Suspect]
     Active Substance: DIMETHICONE
     Indication: PRODUCT USED FOR UNKNOWN INDICATION
     Route: 065

REACTIONS (19)
  - Loss of consciousness [Unknown]
  - Dermatitis allergic [Unknown]
  - Muscle tightness [Unknown]
  - Vaginal discharge [Unknown]
  - Gait disturbance [Unknown]
  - Eye discharge [Unknown]
  - Abdominal distension [Unknown]
  - Withdrawal syndrome [Unknown]
  - Condition aggravated [Unknown]
  - Eye colour change [Unknown]
  - Feeling abnormal [Not Recovered/Not Resolved]
  - Vomiting [Unknown]
  - Muscle disorder [Unknown]
  - Rhinorrhoea [Unknown]
  - Cystitis [Unknown]
  - Malaise [Not Recovered/Not Resolved]
  - Swelling [Unknown]
  - Flatulence [Unknown]
  - Peripheral swelling [Unknown]
